FAERS Safety Report 4269988-6 (Version None)
Quarter: 2004Q1

REPORT INFORMATION
  Report Type: 
  Country: None (occurrence: None)
  Receive Date: 20040113
  Receipt Date: 20040113
  Transmission Date: 20041129
  Serious: Yes (Hospitalization)
  Sender: FDA-Public Use
  Company Number: None

PATIENT
  Age: 80 Year
  Sex: Male

DRUGS (9)
  1. DIGOXIN [Suspect]
     Indication: ATRIAL FIBRILLATION
     Dosage: 0.125 MG QD
     Dates: start: 19980301
  2. CELECOXIB [Concomitant]
  3. FILGRASTIM [Concomitant]
  4. IRBESARTAN [Concomitant]
  5. LORATADINE [Concomitant]
  6. ZOCOR [Concomitant]
  7. WARFARIN SODIUM [Concomitant]
  8. FESO4 [Concomitant]
  9. SOTALOL HCL [Concomitant]

REACTIONS (1)
  - BRADYCARDIA [None]
